FAERS Safety Report 4763743-6 (Version None)
Quarter: 2005Q3

REPORT INFORMATION
  Report Type: 
  Country: None (occurrence: None)
  Receive Date: 20050908
  Receipt Date: 20050902
  Transmission Date: 20060218
  Serious: Yes (Other)
  Sender: FDA-Public Use
  Company Number: CA-BRISTOL-MYERS SQUIBB COMPANY-13097902

PATIENT
  Sex: Female

DRUGS (5)
  1. ESTRACE [Suspect]
     Route: 048
  2. COMBIPATCH [Suspect]
     Route: 062
  3. ESTRADOT [Suspect]
     Route: 062
  4. MEDROXYPROGESTERONE [Concomitant]
  5. CALCIUM + VITAMIN D [Concomitant]

REACTIONS (2)
  - URINARY INCONTINENCE [None]
  - VAGINAL ODOUR [None]
